FAERS Safety Report 13891910 (Version 1)
Quarter: 2017Q3

REPORT INFORMATION
  Report Type: Spontaneous
  Country: US (occurrence: US)
  Receive Date: 20170822
  Receipt Date: 20170822
  Transmission Date: 20171127
  Serious: No
  Sender: FDA-Public Use
  Company Number: US-PFIZER INC-2017360787

PATIENT
  Age: 77 Year
  Sex: Male
  Weight: 115.6 kg

DRUGS (1)
  1. FUROSEMIDE. [Suspect]
     Active Substance: FUROSEMIDE
     Indication: BLOOD PRESSURE ABNORMAL
     Dosage: 40 MG, 2X/DAY (ONE IN MORNING AND ONE EVENING)
     Dates: start: 1997

REACTIONS (1)
  - Peripheral swelling [Unknown]
